FAERS Safety Report 7163424-8 (Version None)
Quarter: 2010Q4

REPORT INFORMATION
  Report Type: 
  Country: None (occurrence: None)
  Receive Date: 20101215
  Receipt Date: 20100415
  Transmission Date: 20110411
  Serious: Yes (Other)
  Sender: FDA-Public Use
  Company Number: US-PFIZER INC-2010047931

PATIENT
  Sex: Female
  Weight: 68.027 kg

DRUGS (11)
  1. LYRICA [Suspect]
     Indication: PANIC ATTACK
     Dosage: 50 MG, 2X/DAY
     Route: 048
     Dates: start: 20100319
  2. LYRICA [Suspect]
     Dosage: 50 MG, 3X/DAY
  3. KLONOPIN [Concomitant]
     Dosage: UNK
  4. PERPHENAZINE [Concomitant]
     Dosage: UNK
  5. LIPITOR [Concomitant]
     Dosage: UNK
  6. PLAVIX [Concomitant]
     Dosage: UNK
  7. LISINOPRIL [Concomitant]
     Dosage: UNK
  8. CLONIDINE [Concomitant]
     Dosage: UNK
  9. AMLODIPINE [Concomitant]
     Dosage: UNK
  10. HYDROCHLOROTHIAZIDE [Concomitant]
     Dosage: UNK
  11. CITALOPRAM [Concomitant]
     Dosage: UNK

REACTIONS (4)
  - BALANCE DISORDER [None]
  - FEAR [None]
  - JOINT SWELLING [None]
  - OEDEMA PERIPHERAL [None]
